FAERS Safety Report 9181646 (Version 2)
Quarter: 2013Q2

REPORT INFORMATION
  Report Type: Spontaneous
  Country: US (occurrence: US)
  Receive Date: 20130322
  Receipt Date: 20130430
  Transmission Date: 20140414
  Serious: Yes (Hospitalization)
  Sender: FDA-Public Use
  Company Number: US-ELI_LILLY_AND_COMPANY-US201303004911

PATIENT
  Sex: Female

DRUGS (11)
  1. FORTEO [Suspect]
     Indication: OSTEOPOROSIS
     Dosage: UNK, QD
     Dates: start: 20120711
  2. CETIA [Concomitant]
     Dosage: 10 MG, 5/W
  3. PAXIL [Concomitant]
     Dosage: 10 MG, EACH MORNING
  4. PAXIL [Concomitant]
     Dosage: 5 MG, EACH EVENING
  5. TRAMADOL [Concomitant]
     Dosage: 50 MG, TID
  6. CELEBREX [Concomitant]
     Dosage: 100 MG, EACH MORNING
  7. MULTIVITAMIN [Concomitant]
     Dosage: UNK, QD
  8. VITAMIN D [Concomitant]
     Dosage: 2000 IU, QD
  9. BABY ASPIRIN [Concomitant]
     Dosage: UNK, 2/W
  10. VITAMIN C [Concomitant]
     Dosage: 1500 MG, QD
  11. MAGNESIUM [Concomitant]
     Dosage: 250 MG, QD

REACTIONS (4)
  - Small intestinal obstruction [Unknown]
  - Vomiting [Unknown]
  - Nausea [Unknown]
  - Diarrhoea [Unknown]
